FAERS Safety Report 22625215 (Version 1)
Quarter: 2023Q2

REPORT INFORMATION
  Report Type: Spontaneous
  Country: US (occurrence: None)
  Receive Date: 20230620
  Receipt Date: 20230620
  Transmission Date: 20230722
  Serious: Yes (Other)
  Sender: FDA-Public Use
  Company Number: None

PATIENT
  Age: 70 Year
  Sex: Female
  Weight: 76.05 kg

DRUGS (6)
  1. PEG-3350 AND ELECTROLYTES [Suspect]
     Active Substance: POLYETHYLENE GLYCOL 3350\POTASSIUM CHLORIDE\SODIUM BICARBONATE\SODIUM CHLORIDE\SODIUM SULFATE
     Indication: Bowel preparation
     Dosage: OTHER QUANTITY : 16 OUNCE(S);?
     Route: 048
     Dates: start: 20230619, end: 20230619
  2. DORZOLAMIDE [Concomitant]
     Active Substance: DORZOLAMIDE
  3. BRIMONIDINE [Concomitant]
     Active Substance: BRIMONIDINE TARTRATE
  4. LATANOPROST [Concomitant]
     Active Substance: LATANOPROST
  5. Drops-Glaucoma [Concomitant]
  6. VITAMIN D [Concomitant]
     Active Substance: VITAMIN D NOS

REACTIONS (7)
  - Drug hypersensitivity [None]
  - Pruritus [None]
  - Skin tightness [None]
  - Swelling of eyelid [None]
  - Paraesthesia oral [None]
  - Rash [None]
  - Pruritus [None]

NARRATIVE: CASE EVENT DATE: 20230619
